FAERS Safety Report 24880032 (Version 3)
Quarter: 2025Q1

REPORT INFORMATION
  Report Type: Spontaneous
  Country: US (occurrence: US)
  Receive Date: 20250123
  Receipt Date: 20250303
  Transmission Date: 20250409
  Serious: Yes (Other)
  Sender: PFIZER
  Company Number: US-PFIZER INC-PV202500009464

PATIENT
  Age: 77 Year
  Sex: Female

DRUGS (1)
  1. IBRANCE [Suspect]
     Active Substance: PALBOCICLIB

REACTIONS (8)
  - Thrombosis [Recovering/Resolving]
  - Dyspnoea [Recovering/Resolving]
  - Contusion [Unknown]
  - Madarosis [Unknown]
  - Epistaxis [Unknown]
  - Full blood count decreased [Recovering/Resolving]
  - Contusion [Recovering/Resolving]
  - Alopecia [Recovering/Resolving]
